FAERS Safety Report 18321494 (Version 1)
Quarter: 2020Q3

REPORT INFORMATION
  Report Type: Spontaneous
  Country: GB (occurrence: GB)
  Receive Date: 20200929
  Receipt Date: 20200929
  Transmission Date: 20201103
  Serious: Yes (Other)
  Sender: FDA-Public Use
  Company Number: GB-SUN PHARMACEUTICAL INDUSTRIES LTD-2020RR-262544

PATIENT
  Age: 21 Year
  Sex: Male

DRUGS (4)
  1. GUADECITABINE [Suspect]
     Active Substance: GUADECITABINE
     Indication: METASTASES TO LUNG
     Dosage: 20 MILLIGRAM/SQ. METER, D 1?5
     Route: 058
     Dates: start: 2017
  2. GEMCITABINE. [Suspect]
     Active Substance: GEMCITABINE
     Indication: METASTASES TO LUNG
     Dosage: 1000 MILLIGRAM/SQ. METER, D8 + 15
     Route: 042
     Dates: start: 2017
  3. FILGRASTIM [Suspect]
     Active Substance: FILGRASTIM
     Indication: HUMAN CHORIONIC GONADOTROPIN INCREASED
     Dosage: 300 MICROGRAM, D15?21; Q21
     Route: 058
     Dates: start: 2017
  4. CISPLATIN. [Suspect]
     Active Substance: CISPLATIN
     Indication: METASTASES TO LUNG
     Dosage: 70 MILLIGRAM/SQ. METER, D8
     Route: 042
     Dates: start: 2017

REACTIONS (5)
  - Febrile neutropenia [Unknown]
  - Neutropenia [Unknown]
  - Therapeutic product effect incomplete [Unknown]
  - Thrombocytopenia [Unknown]
  - Metastases to central nervous system [Recovered/Resolved]
